FAERS Safety Report 19384064 (Version 1)
Quarter: 2021Q2

REPORT INFORMATION
  Report Type: Spontaneous
  Country: US (occurrence: US)
  Receive Date: 20210607
  Receipt Date: 20210607
  Transmission Date: 20210717
  Serious: No
  Sender: FDA-Public Use
  Company Number: US-PERRIGO-20US007057

PATIENT
  Age: 23 Year
  Sex: Male
  Weight: 86.17 kg

DRUGS (1)
  1. MINOXIDIL. [Suspect]
     Active Substance: MINOXIDIL
     Indication: ALOPECIA
     Dosage: UNKNOWN, SINGLE
     Route: 061
     Dates: start: 202005, end: 202005

REACTIONS (1)
  - Application site discomfort [Recovered/Resolved]

NARRATIVE: CASE EVENT DATE: 202005
